FAERS Safety Report 6328719-6 (Version None)
Quarter: 2009Q3

REPORT INFORMATION
  Report Type: 
  Country: None (occurrence: None)
  Receive Date: 20090825
  Receipt Date: 20090825
  Transmission Date: 20100115
  Serious: Yes (Hospitalization)
  Sender: FDA-Public Use
  Company Number: None

PATIENT
  Age: 57 Year
  Sex: Female

DRUGS (1)
  1. INFED [Suspect]
     Indication: ANAEMIA
     Dosage: 25 MG IN NS 10ML ONE TIME TEST DOSE IV
     Route: 042
     Dates: start: 20090817

REACTIONS (3)
  - ANAPHYLACTIC REACTION [None]
  - CARDIO-RESPIRATORY ARREST [None]
  - DRUG HYPERSENSITIVITY [None]
